FAERS Safety Report 9272990 (Version 3)
Quarter: 2013Q2

REPORT INFORMATION
  Report Type: Spontaneous
  Country: JP (occurrence: JP)
  Receive Date: 20130506
  Receipt Date: 20130605
  Transmission Date: 20140414
  Serious: Yes (Hospitalization)
  Sender: FDA-Public Use
  Company Number: JP-GILEAD-2013-0074633

PATIENT
  Age: 54 Year
  Sex: Female

DRUGS (7)
  1. AMBRISENTAN [Suspect]
     Indication: PULMONARY HYPERTENSION
     Dosage: 5MG TWICE PER DAY
     Route: 048
     Dates: start: 20130314, end: 20130410
  2. AMBRISENTAN [Suspect]
     Dosage: 2.5MG TWICE PER DAY
     Route: 048
     Dates: start: 20130213, end: 20130313
  3. ADCIRCA [Concomitant]
     Indication: PULMONARY HYPERTENSION
     Dosage: 20MG PER DAY
     Route: 048
     Dates: start: 20121205
  4. NEORAL [Concomitant]
     Indication: SYSTEMIC LUPUS ERYTHEMATOSUS
     Dosage: 25MG TWICE PER DAY
     Route: 048
     Dates: start: 20121220
  5. MICARDIS [Concomitant]
     Indication: HYPERTENSION
     Dosage: 20MG PER DAY
     Route: 048
     Dates: start: 20050811, end: 20130117
  6. FUROSEMIDE [Concomitant]
     Indication: PULMONARY HYPERTENSION
     Dosage: 20MG PER DAY
     Route: 048
     Dates: start: 20121122
  7. PREDONINE                          /00016201/ [Concomitant]
     Indication: SYSTEMIC LUPUS ERYTHEMATOSUS
     Dosage: 10MG PER DAY
     Route: 048
     Dates: start: 20120801

REACTIONS (16)
  - Bone marrow failure [Unknown]
  - Pulmonary congestion [Unknown]
  - Cardiac failure congestive [Recovering/Resolving]
  - Cardiomegaly [Unknown]
  - Pleural effusion [Unknown]
  - Decreased appetite [Unknown]
  - Malaise [Unknown]
  - Tachycardia [Unknown]
  - Hypotension [Unknown]
  - Dyspnoea [Unknown]
  - Palpitations [Unknown]
  - Dizziness [Unknown]
  - Fatigue [Unknown]
  - Dyspnoea [Unknown]
  - Weight increased [Unknown]
  - Pallor [Unknown]
